FAERS Safety Report 11737518 (Version 1)
Quarter: 2015Q4

REPORT INFORMATION
  Report Type: Spontaneous
  Country: GB (occurrence: GB)
  Receive Date: 20151113
  Receipt Date: 20151113
  Transmission Date: 20160304
  Serious: Yes (Other)
  Sender: FDA-Public Use
  Company Number: GB-JNJFOC-20151107971

PATIENT
  Sex: Female
  Weight: 65 kg

DRUGS (6)
  1. PREGABALIN. [Concomitant]
     Active Substance: PREGABALIN
     Route: 065
  2. OMEPRAZOLE. [Concomitant]
     Active Substance: OMEPRAZOLE
     Route: 065
  3. SIMPONI [Suspect]
     Active Substance: GOLIMUMAB
     Indication: RHEUMATOID ARTHRITIS
     Route: 058
     Dates: start: 20131115
  4. BRICANYL [Concomitant]
     Active Substance: TERBUTALINE SULFATE
     Route: 065
  5. ADALAT [Concomitant]
     Active Substance: NIFEDIPINE
     Route: 065
  6. SYMBICORT [Concomitant]
     Active Substance: BUDESONIDE\FORMOTEROL FUMARATE DIHYDRATE
     Route: 065

REACTIONS (1)
  - Lower respiratory tract infection [Recovered/Resolved]
